FAERS Safety Report 8309163-9 (Version None)
Quarter: 2012Q2

REPORT INFORMATION
  Report Type: 
  Country: None (occurrence: None)
  Receive Date: 20120424
  Receipt Date: 20120416
  Transmission Date: 20120825
  Serious: Yes (Other)
  Sender: FDA-Public Use
  Company Number: US-BAXTER-2012BAX003164

PATIENT

DRUGS (2)
  1. GAMMAGARD LIQUID [Suspect]
  2. GAMMAGARD LIQUID [Suspect]
     Route: 058

REACTIONS (2)
  - SEPSIS [None]
  - RENAL FAILURE ACUTE [None]
